FAERS Safety Report 5162700-8 (Version None)
Quarter: 2006Q4

REPORT INFORMATION
  Report Type: 
  Country: None (occurrence: None)
  Receive Date: 20061201
  Receipt Date: 20060607
  Transmission Date: 20070319
  Serious: No
  Sender: FDA-Public Use
  Company Number: US-GLAXOSMITHKLINE-A0608226A

PATIENT
  Age: 9 Year
  Sex: Female
  Weight: 29.5 kg

DRUGS (1)
  1. AUGMENTIN '125' [Suspect]
     Indication: INFECTION
     Dosage: 875MG UNKNOWN
     Route: 048
     Dates: start: 20051001, end: 20051001

REACTIONS (1)
  - ALOPECIA [None]
